FAERS Safety Report 8451467-3 (Version None)
Quarter: 2012Q2

REPORT INFORMATION
  Report Type: 
  Country: None (occurrence: None)
  Receive Date: 20120620
  Receipt Date: 20120302
  Transmission Date: 20120825
  Serious: No
  Sender: FDA-Public Use
  Company Number: US-VERTEX PHARMACEUTICALS INC.-AE-2012-003072

PATIENT
  Sex: Female
  Weight: 67.192 kg

DRUGS (8)
  1. RIBAVIRIN [Concomitant]
     Indication: HEPATITIS C
     Route: 048
     Dates: start: 20120129
  2. AMBIEN [Concomitant]
     Route: 048
  3. CHOLESTYRAMINE [Concomitant]
     Indication: BLOOD BILIRUBIN INCREASED
     Route: 048
  4. CHOLESTYRAMINE [Concomitant]
     Indication: PRURITUS
  5. PEGASYS [Concomitant]
     Indication: HEPATITIS C
     Route: 058
     Dates: start: 20120129
  6. INCIVEK [Suspect]
     Indication: HEPATITIS C
     Route: 048
     Dates: start: 20120129
  7. KLONOPIN [Concomitant]
     Route: 048
  8. WELLBUTRIN [Concomitant]
     Route: 048

REACTIONS (6)
  - DYSPNOEA [None]
  - PALPITATIONS [None]
  - HAEMOGLOBIN DECREASED [None]
  - HEADACHE [None]
  - PRESYNCOPE [None]
  - PALLOR [None]
